FAERS Safety Report 5843883-0 (Version None)
Quarter: 2008Q3

REPORT INFORMATION
  Report Type: 
  Country: None (occurrence: None)
  Receive Date: 20080731
  Receipt Date: 20080625
  Transmission Date: 20090109
  Serious: No
  Sender: FDA-Public Use
  Company Number: US200805000122

PATIENT
  Age: 74 Year
  Sex: Female

DRUGS (9)
  1. BYETTA [Suspect]
     Indication: TYPE 2 DIABETES MELLITUS
     Dosage: 5 UG, 2/D, SUBCUTANEOUS
     Route: 058
     Dates: start: 20080429
  2. EXENATIDE 5MCG PEN, DISPOSABLE DEVICE (EXENATIDE PEN (5MCG)) PEN,DISPO [Concomitant]
  3. EXENATIDE 5MCG PEN, DISPOSABLE DEVICE (EXENATIDE PEN (5MCG)) PEN,DISPO [Concomitant]
  4. METFORMIN HCL [Concomitant]
  5. AVANDIA [Concomitant]
  6. BENEFIBER /USA/ [Concomitant]
  7. METAMUCIL /00091301/ (PSYLLIUM HYDROPHILIC MUCILLOID) [Concomitant]
  8. TRIAMTERENE AND HYDROCHLOROTHIAZIDE [Concomitant]
  9. CRESTOR [Concomitant]

REACTIONS (6)
  - BLOOD GLUCOSE INCREASED [None]
  - DECREASED APPETITE [None]
  - INJECTION SITE HAEMORRHAGE [None]
  - INJECTION SITE PAIN [None]
  - NAUSEA [None]
  - WEIGHT DECREASED [None]
